FAERS Safety Report 4884883-7 (Version None)
Quarter: 2006Q1

REPORT INFORMATION
  Report Type: 
  Country: None (occurrence: None)
  Receive Date: 20060117
  Receipt Date: 20060104
  Transmission Date: 20060701
  Serious: Yes (Other)
  Sender: FDA-Public Use
  Company Number: 2006004182

PATIENT
  Sex: Male
  Weight: 86.1834 kg

DRUGS (6)
  1. VIAGRA [Suspect]
     Indication: ERECTILE DYSFUNCTION
     Dosage: (50, AS NECESSARY), ORAL
     Route: 048
  2. CLONIDINE [Concomitant]
  3. OLMESARTAN MEDOXOMIL (OLMESARTAN MEDOXOMIL) [Concomitant]
  4. SYNTHROID [Concomitant]
  5. GLIPIZIDE [Concomitant]
  6. DEPAKOTE [Concomitant]

REACTIONS (3)
  - DIALYSIS [None]
  - DRUG INEFFECTIVE [None]
  - RENAL FAILURE [None]
